FAERS Safety Report 10472852 (Version 2)
Quarter: 2014Q4

REPORT INFORMATION
  Report Type: Spontaneous
  Country: CH (occurrence: None)
  Receive Date: 20140922
  Receipt Date: 20141030
  Transmission Date: 20150528
  Serious: Yes (Hospitalization)
  Sender: FDA-Public Use
  Company Number: 20140602

PATIENT
  Age: 49 Year
  Sex: Female
  Weight: 105 kg

DRUGS (5)
  1. FERINJECT [Suspect]
     Active Substance: FERRIC CARBOXYMALTOSE
     Indication: PRODUCT USED FOR UNKNOWN INDICATION
     Dosage: PAST THERAPY
     Route: 042
  2. PALEXIA (TAPENTADOL HYDROCHLORIDE) [Concomitant]
  3. TAMOXIFEN [Concomitant]
     Active Substance: TAMOXIFEN
  4. LYRICIA (PREGABALIN) [Concomitant]
  5. FERINJECT [Suspect]
     Active Substance: FERRIC CARBOXYMALTOSE
     Indication: IRON DEFICIENCY ANAEMIA
     Dosage: 500 MG DILUTED IN 100 ML NACL INTRAVENOUS DRIP
     Route: 041
     Dates: start: 20140227, end: 20140227

REACTIONS (3)
  - Status epilepticus [None]
  - Aura [None]
  - Generalised tonic-clonic seizure [None]

NARRATIVE: CASE EVENT DATE: 20140227
